FAERS Safety Report 22193698 (Version 5)
Quarter: 2024Q1

REPORT INFORMATION
  Report Type: Report from Study
  Country: GB (occurrence: GB)
  Receive Date: 20230410
  Receipt Date: 20240124
  Transmission Date: 20240410
  Serious: Yes (Hospitalization)
  Sender: FDA-Public Use
  Company Number: GB-TEVA-2023-GB-2875484

PATIENT
  Age: 30 Year
  Weight: 75 kg

DRUGS (3)
  1. PACLITAXEL [Suspect]
     Active Substance: PACLITAXEL
     Indication: Anal cancer
     Dosage: 80 MILLIGRAM/SQ. METER, DAYS 1. 8, AND 15 OF EACH, 28-DAY CYCLE.
     Route: 042
     Dates: start: 20230119, end: 20230222
  2. PACLITAXEL [Suspect]
     Active Substance: PACLITAXEL
     Indication: Anal cancer
     Dosage: DOSAGE TEXT: ON DAYS 1, 8, AND 15 OF EACH 28-DAY-CYCLE
     Route: 042
  3. CARBOPLATIN [Suspect]
     Active Substance: CARBOPLATIN
     Indication: Anal cancer
     Dosage: DOSAGE TEXT: AUC 6 ON DAY 1 OF EACH 28-DAY CYCLE
     Route: 042

REACTIONS (4)
  - Catheter site infection [Recovered/Resolved]
  - Wound infection [Recovered/Resolved]
  - Fungating wound [Recovered/Resolved]
  - Anal infection [Recovered/Resolved]

NARRATIVE: CASE EVENT DATE: 20230204
